FAERS Safety Report 6526093-3 (Version None)
Quarter: 2009Q4

REPORT INFORMATION
  Report Type: 
  Country: None (occurrence: None)
  Receive Date: 20091222
  Receipt Date: 20091213
  Transmission Date: 20100525
  Serious: Yes (Hospitalization)
  Sender: FDA-Public Use
  Company Number: CIP09003502

PATIENT
  Age: 83 Year
  Sex: Male

DRUGS (2)
  1. ACTONEL [Suspect]
     Indication: OSTEOPOROSIS
     Dosage: 17.5 MG ONCE WEEKLY, ORAL, 17.5 MG DAILY, ORAL
     Route: 048
     Dates: end: 20091109
  2. ACTONEL [Suspect]
     Indication: OSTEOPOROSIS
     Dosage: 17.5 MG ONCE WEEKLY, ORAL, 17.5 MG DAILY, ORAL
     Route: 048
     Dates: start: 20091201, end: 20091201

REACTIONS (6)
  - DEHYDRATION [None]
  - DEPRESSED LEVEL OF CONSCIOUSNESS [None]
  - HYPOPHAGIA [None]
  - OESOPHAGITIS [None]
  - RENAL FAILURE [None]
  - VOMITING [None]
